FAERS Safety Report 9686559 (Version 1)
Quarter: 2013Q4

REPORT INFORMATION
  Report Type: Spontaneous
  Country: US (occurrence: US)
  Receive Date: 20131113
  Receipt Date: 20131113
  Transmission Date: 20140711
  Serious: No
  Sender: FDA-Public Use
  Company Number: US-ENDO PHARMACEUTICALS INC.-TRAZ20110009

PATIENT
  Sex: Male
  Weight: 79.45 kg

DRUGS (3)
  1. TRAZODONE HYDROCHLORIDE TABLETS 50MG [Suspect]
     Indication: INSOMNIA
     Dosage: 25 MG
     Route: 048
  2. REQUIP [Concomitant]
     Indication: RESTLESS LEGS SYNDROME
     Dosage: UNKNOWN
     Route: 048
  3. MIRAPEX [Concomitant]
     Indication: RESTLESS LEGS SYNDROME
     Dosage: UNKNOWN
     Route: 048

REACTIONS (1)
  - Abdominal discomfort [Not Recovered/Not Resolved]
